FAERS Safety Report 5442110-6 (Version None)
Quarter: 2007Q3

REPORT INFORMATION
  Report Type: 
  Country: None (occurrence: None)
  Receive Date: 20070904
  Receipt Date: 20070821
  Transmission Date: 20080115
  Serious: Yes (Hospitalization)
  Sender: FDA-Public Use
  Company Number: FR-ROCHE-512732

PATIENT
  Age: 17 Year
  Sex: Male

DRUGS (2)
  1. ROCEPHIN [Suspect]
     Indication: MENINGITIS
     Dosage: FORM: INJECTABLE SOLUTION.
     Route: 030
     Dates: start: 20060708, end: 20060727
  2. TEGELINE [Concomitant]
     Indication: MILLER FISHER SYNDROME
     Dosage: INFUSION.
     Dates: start: 20060714, end: 20060715

REACTIONS (4)
  - AGRANULOCYTOSIS [None]
  - BACTERIA STOOL IDENTIFIED [None]
  - CHOLELITHIASIS [None]
  - CYTOLYTIC HEPATITIS [None]
